FAERS Safety Report 8920854 (Version 2)
Quarter: 2013Q3

REPORT INFORMATION
  Report Type: Report from Study
  Country: JP (occurrence: JP)
  Receive Date: 20121121
  Receipt Date: 20130716
  Transmission Date: 20140515
  Serious: Yes (Hospitalization)
  Sender: FDA-Public Use
  Company Number: JP-VERTEX PHARMACEUTICAL INC.-AE-2012-006749

PATIENT
  Age: 45 Year
  Sex: Male

DRUGS (6)
  1. VX-950 (TELAPREVIR) [Suspect]
     Indication: CHRONIC HEPATITIS C
     Dosage: 2250 MG, QD
     Route: 048
     Dates: start: 20120308, end: 20120427
  2. PEGINTERFERON ALFA-2B [Suspect]
     Indication: CHRONIC HEPATITIS C
     Dosage: 1.5 ?G/KG, QW
     Route: 058
     Dates: start: 20120308, end: 20120425
  3. RIBAVIRIN [Concomitant]
     Dosage: 800 MG, QD
     Route: 048
     Dates: start: 20120308, end: 20120502
  4. TAKEPRON [Concomitant]
     Dosage: 30 MG, QD
     Route: 048
  5. TAKEPRON [Concomitant]
     Dosage: 15 MG, QD
     Route: 048
  6. LENDORMIN [Concomitant]
     Dosage: 0.25 MG, QD/PRN
     Route: 048

REACTIONS (1)
  - Generalised erythema [Recovered/Resolved]
